FAERS Safety Report 9958371 (Version 1)
Quarter: 2014Q1

REPORT INFORMATION
  Report Type: Report from Study
  Country: US (occurrence: US)
  Receive Date: 20140305
  Receipt Date: 20140305
  Transmission Date: 20141002
  Serious: Yes (Other)
  Sender: FDA-Public Use
  Company Number: US-ROCHE-1340234

PATIENT
  Age: 63 Year
  Sex: Female

DRUGS (9)
  1. AVASTIN [Suspect]
     Indication: DIABETIC RETINAL OEDEMA
     Route: 065
  2. LUCENTIS [Suspect]
     Indication: DIABETIC RETINAL OEDEMA
     Dosage: 03/DEC/2010, 04/FEB/2011, 23/MAY/2011, 17/JUN/2011, 23/SEP/2011, 18/NOV/2011, 16/DEC/2011,, 27/JAN/2
     Route: 031
     Dates: start: 20101029
  3. DILTIAZEM HCL [Concomitant]
     Route: 065
  4. OMEGA-3 [Concomitant]
     Dosage: 3 DAILY
     Route: 065
  5. LOVASTATIN [Concomitant]
     Route: 065
  6. METFORMIN [Concomitant]
     Route: 065
  7. LISINOPRIL [Concomitant]
     Route: 065
  8. HYDROCHLOROTHIAZIDE [Concomitant]
     Route: 065
  9. GLUCOSAMINE/CHONDROITIN [Concomitant]
     Dosage: 2 TABLETS
     Route: 065

REACTIONS (10)
  - Eye pruritus [Unknown]
  - Vitreous degeneration [Unknown]
  - Macular fibrosis [Unknown]
  - Macular degeneration [Unknown]
  - Vision blurred [Unknown]
  - Vitreous floaters [Unknown]
  - Visual acuity reduced [Unknown]
  - Vitreous detachment [Unknown]
  - Vitreous haemorrhage [Unknown]
  - Cataract nuclear [Unknown]
